FAERS Safety Report 4541184-4 (Version None)
Quarter: 2004Q4

REPORT INFORMATION
  Report Type: 
  Country: None (occurrence: None)
  Receive Date: 20041227
  Receipt Date: 20041213
  Transmission Date: 20050328
  Serious: Yes (Other)
  Sender: FDA-Public Use
  Company Number: 2004-DE-06207GD

PATIENT
  Sex: 0

DRUGS (4)
  1. CLONIDINE HCL [Suspect]
     Dosage: 500 MCG PO ONCE
     Route: 048
  2. IBUPROFEN [Suspect]
     Dosage: 200 MG PO ONCE
     Route: 048
  3. DIAZEPAM [Suspect]
     Dosage: 20 MG PO ONCE
     Route: 048
  4. DEXAMPHETAMINE             (DEXAMFETAMINE) [Suspect]
     Dosage: 120 MG PO ONCE
     Route: 048

REACTIONS (2)
  - DRUG TOXICITY [None]
  - SELF-MEDICATION [None]
